FAERS Safety Report 5200141-5 (Version None)
Quarter: 2007Q1

REPORT INFORMATION
  Report Type: 
  Country: None (occurrence: None)
  Receive Date: 20070105
  Receipt Date: 20061228
  Transmission Date: 20070707
  Serious: Yes (Hospitalization)
  Sender: FDA-Public Use
  Company Number: DE-ABBOTT-06P-062-0353689-00

PATIENT
  Sex: Male
  Weight: 94 kg

DRUGS (2)
  1. ZEMPLAR [Suspect]
     Indication: HYPERPARATHYROIDISM SECONDARY
     Route: 042
     Dates: start: 20060508
  2. ZEMPLAR [Suspect]
     Dates: start: 20061027

REACTIONS (8)
  - ANGINA PECTORIS [None]
  - CARDIAC FAILURE CONGESTIVE [None]
  - DYSPNOEA [None]
  - ELECTROCARDIOGRAM CHANGE [None]
  - NAUSEA [None]
  - OEDEMA PERIPHERAL [None]
  - PLEURITIC PAIN [None]
  - PRODUCTIVE COUGH [None]
